FAERS Safety Report 5722795-7 (Version None)
Quarter: 2008Q2

REPORT INFORMATION
  Report Type: 
  Country: None (occurrence: None)
  Receive Date: 20080429
  Receipt Date: 20080129
  Transmission Date: 20081010
  Serious: No
  Sender: FDA-Public Use
  Company Number: US-ASTRAZENECA-2008UW02036

PATIENT
  Age: 81 Year
  Sex: Female
  Weight: 88.5 kg

DRUGS (11)
  1. NEXIUM [Suspect]
     Indication: GASTROOESOPHAGEAL REFLUX DISEASE
     Route: 048
  2. HYDROCHLOROTHIAZIDE [Concomitant]
  3. COZAAR [Concomitant]
  4. PAXIL [Concomitant]
  5. LIPITOR [Concomitant]
  6. ASCORBIC ACID [Concomitant]
  7. CALTRATE [Concomitant]
  8. VITAMIN D [Concomitant]
  9. OSTEO BI-FLEX [Concomitant]
  10. CHELATED MAGNESIUM [Concomitant]
  11. COQ 10 [Concomitant]

REACTIONS (4)
  - ABDOMINAL PAIN UPPER [None]
  - GROIN PAIN [None]
  - HEADACHE [None]
  - ILL-DEFINED DISORDER [None]
